FAERS Safety Report 6164973-1 (Version None)
Quarter: 2009Q2

REPORT INFORMATION
  Report Type: 
  Country: None (occurrence: None)
  Receive Date: 20090423
  Receipt Date: 20090309
  Transmission Date: 20091009
  Serious: No
  Sender: FDA-Public Use
  Company Number: US-BAYER-200915155NA

PATIENT
  Age: 36 Year
  Sex: Female
  Weight: 64 kg

DRUGS (1)
  1. OCELLA [Suspect]
     Indication: CONTRACEPTION
     Route: 048
     Dates: start: 20080801

REACTIONS (7)
  - ABDOMINAL DISTENSION [None]
  - ADNEXA UTERI PAIN [None]
  - DEPRESSION [None]
  - HEADACHE [None]
  - METRORRHAGIA [None]
  - NO ADVERSE EVENT [None]
  - PELVIC PAIN [None]
